FAERS Safety Report 18990720 (Version 1)
Quarter: 2021Q1

REPORT INFORMATION
  Report Type: Spontaneous
  Country: US (occurrence: US)
  Receive Date: 20210310
  Receipt Date: 20210310
  Transmission Date: 20210420
  Serious: No
  Sender: FDA-Public Use
  Company Number: US-LUPIN PHARMACEUTICALS INC.-2021-02837

PATIENT
  Age: 83 Year
  Sex: Female

DRUGS (1)
  1. PRAVASTATIN SODIUM TABLETS USP 20 MG [Suspect]
     Active Substance: PRAVASTATIN SODIUM
     Indication: PRODUCT USED FOR UNKNOWN INDICATION
     Dosage: 20 MILLIGRAM, QD AT EVERY NIGHT
     Route: 065

REACTIONS (3)
  - Product substitution issue [Unknown]
  - Product dispensing error [Unknown]
  - Pollakiuria [Not Recovered/Not Resolved]

NARRATIVE: CASE EVENT DATE: 202102
